FAERS Safety Report 8123440-6 (Version None)
Quarter: 2012Q1

REPORT INFORMATION
  Report Type: 
  Country: None (occurrence: None)
  Receive Date: 20120208
  Receipt Date: 20120127
  Transmission Date: 20120608
  Serious: Yes (Other)
  Sender: FDA-Public Use
  Company Number: PHHY2011JP92888

PATIENT
  Age: 51 Year
  Sex: Female

DRUGS (3)
  1. PROGRAF [Suspect]
     Indication: LIVER TRANSPLANT
  2. METHYLPREDNISOLONE [Concomitant]
     Indication: LIVER TRANSPLANT
     Dosage: UNK UKN, UNK
  3. SIMULECT [Suspect]
     Indication: LIVER TRANSPLANT
     Dosage: 20 MG,
     Route: 042

REACTIONS (8)
  - PLATELET COUNT DECREASED [None]
  - HAEMORRHAGIC DISORDER [None]
  - THROMBOTIC MICROANGIOPATHY [None]
  - HAEMOGLOBIN DECREASED [None]
  - BLOOD BILIRUBIN INCREASED [None]
  - ANAEMIA [None]
  - PYREXIA [None]
  - BLOOD LACTATE DEHYDROGENASE INCREASED [None]
